FAERS Safety Report 7340558-6 (Version None)
Quarter: 2011Q1

REPORT INFORMATION
  Report Type: 
  Country: None (occurrence: None)
  Receive Date: 20110309
  Receipt Date: 20110210
  Transmission Date: 20110831
  Serious: No
  Sender: FDA-Public Use
  Company Number: US-B.I. PHARMACEUTICALS,INC./RIDGEFIELD-2011-BP-00325BP

PATIENT
  Sex: Female

DRUGS (14)
  1. PULMICORT [Concomitant]
     Indication: ASTHMA
     Dosage: 180 MCG
  2. SPIRIVA [Concomitant]
     Indication: ASTHMA
     Dosage: 18 MCG
     Dates: start: 20100801
  3. SINGULAIR [Concomitant]
     Dosage: 10 MG
  4. PREVACID [Concomitant]
     Indication: GASTROOESOPHAGEAL REFLUX DISEASE
  5. DIOVAN [Concomitant]
     Indication: HYPERTENSION
     Dosage: 80 MG
  6. OMEPRAZOLE [Concomitant]
     Dosage: 40 MG
  7. DIGOXIN [Concomitant]
     Indication: ATRIAL FIBRILLATION
  8. PROVENTIL [Concomitant]
     Indication: ASTHMA
  9. PRADAXA [Suspect]
     Indication: ATRIAL FIBRILLATION
     Dosage: 300 MG
     Route: 048
     Dates: start: 20101201
  10. ULORIC [Concomitant]
     Dosage: 40 MG
  11. TRAMADOL HCL [Concomitant]
     Indication: PAIN
  12. PRADAXA [Suspect]
     Indication: ANTICOAGULANT THERAPY
  13. VERAPAMIL [Concomitant]
     Indication: ATRIAL FIBRILLATION
     Dosage: 180 MG
  14. VITAMIN D [Concomitant]
     Indication: PROPHYLAXIS

REACTIONS (2)
  - SKIN DISCOLOURATION [None]
  - BREAST HAEMATOMA [None]
